FAERS Safety Report 10144226 (Version 2)
Quarter: 2014Q2

REPORT INFORMATION
  Report Type: Report from Study
  Country: US (occurrence: US)
  Receive Date: 20140430
  Receipt Date: 20140507
  Transmission Date: 20141212
  Serious: Yes (Other)
  Sender: FDA-Public Use
  Company Number: US-BAXTER-2014BAX021250

PATIENT
  Age: 55 Year
  Sex: Female

DRUGS (1)
  1. GAMMAGARD LIQUID [Suspect]
     Indication: SELECTIVE IGG SUBCLASS DEFICIENCY
     Route: 058
     Dates: start: 200906

REACTIONS (1)
  - Upper respiratory tract infection [Recovered/Resolved]
